FAERS Safety Report 6287842-5 (Version None)
Quarter: 2009Q3

REPORT INFORMATION
  Report Type: 
  Country: None (occurrence: None)
  Receive Date: 20090729
  Receipt Date: 20070612
  Transmission Date: 20100115
  Serious: Yes (Other)
  Sender: FDA-Public Use
  Company Number: US-ASTRAZENECA-2006UW27837

PATIENT
  Age: 46 Year
  Sex: Female
  Weight: 93 kg

DRUGS (18)
  1. SEROQUEL [Suspect]
     Indication: DEPRESSION
     Route: 048
     Dates: start: 20031101, end: 20050301
  2. SEROQUEL [Suspect]
     Indication: ANXIETY
     Route: 048
     Dates: start: 20031101, end: 20050301
  3. SEROQUEL [Suspect]
     Dosage: 25-200 MG
     Route: 048
     Dates: start: 20040226
  4. SEROQUEL [Suspect]
     Dosage: 25-200 MG
     Route: 048
     Dates: start: 20040226
  5. GLUCOTROL XL [Concomitant]
     Dosage: 2.5-10 MG
     Route: 048
  6. GLUCOPHAGE [Concomitant]
     Route: 048
  7. VICODIN [Concomitant]
     Dosage: 5-500 MG
     Route: 048
  8. NORVASC [Concomitant]
     Indication: BLOOD PRESSURE
     Route: 048
  9. EFFEXOR [Concomitant]
     Dosage: 37.5-150 MG
     Route: 048
  10. LASIX [Concomitant]
     Dosage: 2-40 MG
     Route: 048
  11. HUMALOG MIX [Concomitant]
     Dosage: 70/30, 15 UNITS AC BEFORE BREAKFAST AND SUPPER
  12. AMBIEN [Concomitant]
     Route: 048
  13. COMPAZINE [Concomitant]
     Indication: BLOOD PRESSURE
     Route: 048
  14. PREVACID [Concomitant]
     Route: 048
  15. XANAX [Concomitant]
     Indication: ANXIETY
     Route: 048
  16. PROMETHAZINE [Concomitant]
     Indication: NAUSEA
     Dosage: 25-50 MG
     Route: 048
  17. FLEXERIL [Concomitant]
  18. CYTOXAN [Concomitant]

REACTIONS (12)
  - ESSENTIAL HYPERTENSION [None]
  - HEART RATE IRREGULAR [None]
  - HYPERTENSION [None]
  - INCREASED TENDENCY TO BRUISE [None]
  - INSOMNIA [None]
  - MYOCARDIAL INFARCTION [None]
  - NEOPLASM MALIGNANT [None]
  - NERVE INJURY [None]
  - NERVOUSNESS [None]
  - PANCREATITIS [None]
  - TARDIVE DYSKINESIA [None]
  - TYPE 1 DIABETES MELLITUS [None]
